FAERS Safety Report 13135157 (Version 8)
Quarter: 2017Q3

REPORT INFORMATION
  Report Type: Spontaneous
  Country: KR (occurrence: KR)
  Receive Date: 20170120
  Receipt Date: 20170823
  Transmission Date: 20171127
  Serious: Yes (Other)
  Sender: FDA-Public Use
  Company Number: KR-009507513-1701KOR008632

PATIENT
  Age: 75 Year
  Sex: Male
  Weight: 65 kg

DRUGS (45)
  1. EMEND (FOSAPREPITANT DIMEGLUMINE) [Suspect]
     Active Substance: FOSAPREPITANT DIMEGLUMINE
     Dosage: 150 MG, ONCE
     Route: 042
     Dates: start: 20160922, end: 20160922
  2. IRINOTECAN HYDROCHLORIDE. [Concomitant]
     Active Substance: IRINOTECAN HYDROCHLORIDE
     Dosage: 316 MG, ONCE, CYCLE 4
     Route: 042
     Dates: start: 20161027, end: 20161027
  3. FLUOROURACIL. [Concomitant]
     Active Substance: FLUOROURACIL
     Indication: CHEMOTHERAPY
     Dosage: STRENGTH: 1000 MG/20ML; 2816 MG, ONCE (CYCLE 1)
     Route: 042
     Dates: start: 20160901, end: 20160902
  4. FLUOROURACIL. [Concomitant]
     Active Substance: FLUOROURACIL
     Dosage: STRENGTH: 1000 MG/20ML; 2816 MG, ONCE (CYCLE 4)
     Route: 042
     Dates: start: 20161027, end: 20161028
  5. ALOXI [Concomitant]
     Active Substance: PALONOSETRON HYDROCHLORIDE
     Indication: PROPHYLAXIS OF NAUSEA AND VOMITING
     Dosage: 5 ML, ONCE
     Route: 042
     Dates: start: 20160901, end: 20160901
  6. ALOXI [Concomitant]
     Active Substance: PALONOSETRON HYDROCHLORIDE
     Dosage: 5 ML, ONCE
     Route: 042
     Dates: start: 20160922, end: 20160922
  7. ALOXI [Concomitant]
     Active Substance: PALONOSETRON HYDROCHLORIDE
     Dosage: 5 ML, ONCE
     Route: 042
     Dates: start: 20161201, end: 20161201
  8. ERBITUX [Concomitant]
     Active Substance: CETUXIMAB
     Indication: CHEMOTHERAPY
     Dosage: STRENGTH: 5MG/ML 20 ML; 880 MG, ONCE, CYCLE 1
     Route: 042
     Dates: start: 20160901, end: 20160901
  9. ERBITUX [Concomitant]
     Active Substance: CETUXIMAB
     Dosage: STRENGTH: 5MG/ML 20 ML; 880 MG, ONCE, CYCLE 2
     Route: 042
     Dates: start: 20160922, end: 20160922
  10. ERBITUX [Concomitant]
     Active Substance: CETUXIMAB
     Dosage: STRENGTH: 5MG/ML 20 ML; 880 MG, ONCE, CYCLE 3
     Route: 042
     Dates: start: 20161013, end: 20161013
  11. IRINOTECAN HYDROCHLORIDE. [Concomitant]
     Active Substance: IRINOTECAN HYDROCHLORIDE
     Indication: CHEMOTHERAPY
     Dosage: 316 MG, ONCE, CYCLE 2
     Route: 042
     Dates: start: 20160922, end: 20160922
  12. FLUOROURACIL. [Concomitant]
     Active Substance: FLUOROURACIL
     Dosage: STRENGTH: 1000 MG/20ML; 2816 MG, ONCE (CYCLE 6)
     Route: 042
     Dates: start: 20161201, end: 20161202
  13. DEXAMETHASONE SODIUM PHOSPHATE. [Concomitant]
     Active Substance: DEXAMETHASONE SODIUM PHOSPHATE
     Dosage: STRENGTH: 5MG/ML; 10 MG, ONCE
     Route: 042
     Dates: start: 20160922, end: 20160922
  14. EMEND (FOSAPREPITANT DIMEGLUMINE) [Suspect]
     Active Substance: FOSAPREPITANT DIMEGLUMINE
     Dosage: 150 MG, ONCE
     Route: 042
     Dates: start: 20161013, end: 20161013
  15. FLUOROURACIL. [Concomitant]
     Active Substance: FLUOROURACIL
     Dosage: STRENGTH: 1000 MG/20ML; 2816 MG, ONCE (CYCLE 5)
     Route: 042
     Dates: start: 20161110, end: 20161111
  16. DEXAMETHASONE SODIUM PHOSPHATE. [Concomitant]
     Active Substance: DEXAMETHASONE SODIUM PHOSPHATE
     Indication: PROPHYLAXIS OF NAUSEA AND VOMITING
     Dosage: STRENGTH: 5MG/ML; 10 MG, ONCE
     Route: 042
     Dates: start: 20160901, end: 20160901
  17. DEXAMETHASONE SODIUM PHOSPHATE. [Concomitant]
     Active Substance: DEXAMETHASONE SODIUM PHOSPHATE
     Dosage: STRENGTH: 5MG/ML; 10 MG, ONCE
     Route: 042
     Dates: start: 20161027, end: 20161027
  18. DEXAMETHASONE SODIUM PHOSPHATE. [Concomitant]
     Active Substance: DEXAMETHASONE SODIUM PHOSPHATE
     Dosage: STRENGTH: 5MG/ML; 10 MG, ONCE
     Route: 042
     Dates: start: 20161110, end: 20161110
  19. ERBITUX [Concomitant]
     Active Substance: CETUXIMAB
     Dosage: STRENGTH: 5MG/ML 20 ML; 880 MG, ONCE, CYCLE 4
     Route: 042
     Dates: start: 20161027, end: 20161027
  20. IRINOTECAN HYDROCHLORIDE. [Concomitant]
     Active Substance: IRINOTECAN HYDROCHLORIDE
     Dosage: 316 MG, ONCE, CYCLE 6
     Route: 042
     Dates: start: 20161201, end: 20161201
  21. FLUOROURACIL. [Concomitant]
     Active Substance: FLUOROURACIL
     Dosage: STRENGTH: 1000 MG/20ML; 2816 MG, ONCE (CYCLE 3)
     Route: 042
     Dates: start: 20161013, end: 20161014
  22. ALOXI [Concomitant]
     Active Substance: PALONOSETRON HYDROCHLORIDE
     Dosage: 5 ML, ONCE
     Route: 042
     Dates: start: 20161027, end: 20161027
  23. ALOXI [Concomitant]
     Active Substance: PALONOSETRON HYDROCHLORIDE
     Dosage: 5 ML, ONCE
     Route: 042
     Dates: start: 20161110, end: 20161110
  24. ATROPINE. [Concomitant]
     Active Substance: ATROPINE
     Dosage: STRENGTH: 0.5 MG/ML; 0.5 MG, ONCE
     Route: 058
     Dates: start: 20161013, end: 20161013
  25. EMEND (FOSAPREPITANT DIMEGLUMINE) [Suspect]
     Active Substance: FOSAPREPITANT DIMEGLUMINE
     Indication: PROPHYLAXIS OF NAUSEA AND VOMITING
     Dosage: 150 MG, ONCE
     Route: 042
     Dates: start: 20160901, end: 20160901
  26. EMEND (FOSAPREPITANT DIMEGLUMINE) [Suspect]
     Active Substance: FOSAPREPITANT DIMEGLUMINE
     Dosage: 150 MG, ONCE
     Route: 042
     Dates: start: 20161201, end: 20161201
  27. FLUOROURACIL. [Concomitant]
     Active Substance: FLUOROURACIL
     Dosage: STRENGTH: 1000 MG/20ML; 2816 MG, ONCE (CYCLE 2)
     Route: 042
     Dates: start: 20160922, end: 20160923
  28. ASPIRIN. [Concomitant]
     Active Substance: ASPIRIN
     Indication: THROMBOSIS PROPHYLAXIS
     Dosage: 1 TABLET, QD
     Route: 048
     Dates: start: 2006
  29. DICHLOZID [Concomitant]
     Indication: HYPERTENSION
     Dosage: 12.5 MG, QD
     Route: 048
     Dates: start: 2006
  30. TAGAMET [Concomitant]
     Active Substance: CIMETIDINE
     Dosage: STRENGTH: 200MG/2ML; 200 MG, ONCE
     Route: 042
     Dates: start: 20160922, end: 20160922
  31. TAGAMET [Concomitant]
     Active Substance: CIMETIDINE
     Dosage: STRENGTH: 200MG/2ML; 200 MG, ONCE
     Route: 042
     Dates: start: 20161201, end: 20161201
  32. ATROPINE. [Concomitant]
     Active Substance: ATROPINE
     Indication: PROPHYLAXIS
     Dosage: STRENGTH: 0.5 MG/ML; 0.5 MG, ONCE
     Route: 058
     Dates: start: 20160901, end: 20160901
  33. ALOXI [Concomitant]
     Active Substance: PALONOSETRON HYDROCHLORIDE
     Dosage: 5 ML, ONCE
     Route: 042
     Dates: start: 20161013, end: 20161013
  34. SKAD [Concomitant]
     Active Substance: AMLODIPINE MALEATE
     Indication: HYPERTENSION
     Dosage: 5 MG, QD
     Route: 048
     Dates: start: 2006
  35. TAGAMET [Concomitant]
     Active Substance: CIMETIDINE
     Dosage: STRENGTH: 200MG/2ML; 200 MG, ONCE
     Route: 042
     Dates: start: 20161013, end: 20161013
  36. EMEND (FOSAPREPITANT DIMEGLUMINE) [Suspect]
     Active Substance: FOSAPREPITANT DIMEGLUMINE
     Dosage: 150 MG, ONCE
     Route: 042
     Dates: start: 20161027, end: 20161027
  37. EMEND (FOSAPREPITANT DIMEGLUMINE) [Suspect]
     Active Substance: FOSAPREPITANT DIMEGLUMINE
     Dosage: 150 MG, ONCE
     Route: 042
     Dates: start: 20161110, end: 20161110
  38. IRINOTECAN HYDROCHLORIDE. [Concomitant]
     Active Substance: IRINOTECAN HYDROCHLORIDE
     Dosage: 316 MG, ONCE, CYCLE 3
     Route: 042
     Dates: start: 20161013, end: 20161013
  39. IRINOTECAN HYDROCHLORIDE. [Concomitant]
     Active Substance: IRINOTECAN HYDROCHLORIDE
     Dosage: 316 MG, ONCE, CYCLE 5
     Route: 042
     Dates: start: 20161110, end: 20161110
  40. DEXAMETHASONE SODIUM PHOSPHATE. [Concomitant]
     Active Substance: DEXAMETHASONE SODIUM PHOSPHATE
     Dosage: STRENGTH: 5MG/ML; 10 MG, ONCE
     Route: 042
     Dates: start: 20161013, end: 20161013
  41. DEXAMETHASONE SODIUM PHOSPHATE. [Concomitant]
     Active Substance: DEXAMETHASONE SODIUM PHOSPHATE
     Dosage: STRENGTH: 5MG/ML; 10 MG, ONCE
     Route: 042
     Dates: start: 20161201, end: 20161201
  42. TAGAMET [Concomitant]
     Active Substance: CIMETIDINE
     Indication: PROPHYLAXIS
     Dosage: STRENGTH: 200MG/2ML; 200 MG, ONCE
     Route: 042
     Dates: start: 20160901, end: 20160901
  43. TAGAMET [Concomitant]
     Active Substance: CIMETIDINE
     Dosage: STRENGTH: 200MG/2ML; 200 MG, ONCE
     Route: 042
     Dates: start: 20161027, end: 20161027
  44. TAGAMET [Concomitant]
     Active Substance: CIMETIDINE
     Dosage: STRENGTH: 200MG/2ML; 200 MG, ONCE
     Route: 042
     Dates: start: 20161110, end: 20161110
  45. ATROPINE. [Concomitant]
     Active Substance: ATROPINE
     Dosage: STRENGTH: 0.5 MG/ML; 0.5 MG, ONCE
     Route: 058
     Dates: start: 20160922, end: 20160922

REACTIONS (1)
  - Embolism [Recovered/Resolved]

NARRATIVE: CASE EVENT DATE: 20161006
